FAERS Safety Report 20741121 (Version 3)
Quarter: 2022Q2

REPORT INFORMATION
  Report Type: Spontaneous
  Country: US (occurrence: US)
  Receive Date: 20220422
  Receipt Date: 20220524
  Transmission Date: 20220721
  Serious: Yes (Other)
  Sender: FDA-Public Use
  Company Number: US-ORGANON-O2204USA001567

PATIENT
  Age: 28 Year
  Sex: Female
  Weight: 70.748 kg

DRUGS (1)
  1. NEXPLANON [Suspect]
     Active Substance: ETONOGESTREL
     Dosage: ONE EVERY THREE YEARS, IN LEFT ARM
     Route: 059
     Dates: start: 20220406, end: 20220413

REACTIONS (4)
  - Device expulsion [Recovered/Resolved]
  - Implant site pain [Unknown]
  - Complication of device insertion [Recovered/Resolved]
  - Product quality issue [Unknown]

NARRATIVE: CASE EVENT DATE: 20220406
